FAERS Safety Report 25434784 (Version 1)
Quarter: 2025Q2

REPORT INFORMATION
  Report Type: Spontaneous
  Country: US (occurrence: US)
  Receive Date: 20250613
  Receipt Date: 20250613
  Transmission Date: 20250717
  Serious: No
  Sender: DR REDDYS
  Company Number: None

PATIENT
  Age: 56 Year
  Sex: Female

DRUGS (1)
  1. ISOTRETINOIN [Suspect]
     Active Substance: ISOTRETINOIN
     Indication: Granulomatous rosacea

REACTIONS (4)
  - Erythema [Unknown]
  - Condition aggravated [Unknown]
  - Swelling face [Unknown]
  - Arthralgia [Unknown]
